FAERS Safety Report 13865168 (Version 1)
Quarter: 2017Q3

REPORT INFORMATION
  Report Type: Spontaneous
  Country: US (occurrence: US)
  Receive Date: 20170814
  Receipt Date: 20170814
  Transmission Date: 20171127
  Serious: No
  Sender: FDA-Public Use
  Company Number: US-ALLERGAN-1710464US

PATIENT
  Age: 53 Year
  Sex: Female

DRUGS (5)
  1. KADIAN [Suspect]
     Active Substance: MORPHINE SULFATE
     Indication: MUSCULOSKELETAL DISORDER
     Dosage: 20 MG, BID
     Route: 065
  2. KADIAN [Suspect]
     Active Substance: MORPHINE SULFATE
     Indication: MUSCLE ATROPHY
  3. KADIAN [Suspect]
     Active Substance: MORPHINE SULFATE
     Indication: NERVE INJURY
  4. KADIAN [Suspect]
     Active Substance: MORPHINE SULFATE
     Indication: HEREDITARY NEUROPATHY WITH LIABILITY TO PRESSURE PALSIES
  5. KADIAN [Suspect]
     Active Substance: MORPHINE SULFATE
     Indication: CARPAL TUNNEL SYNDROME

REACTIONS (1)
  - Drug screen negative [Unknown]
